FAERS Safety Report 20546568 (Version 1)
Quarter: 2022Q1

REPORT INFORMATION
  Report Type: Report from Study
  Country: CN (occurrence: None)
  Receive Date: 20220303
  Receipt Date: 20220303
  Transmission Date: 20220423
  Serious: Yes (Hospitalization)
  Sender: FDA-Public Use
  Company Number: CN-ROCHE-2673087

PATIENT
  Age: 32 Year
  Sex: Female
  Weight: 48 kg

DRUGS (4)
  1. ATEZOLIZUMAB [Suspect]
     Active Substance: ATEZOLIZUMAB
     Indication: Triple negative breast cancer
     Dosage: ATEZOLIZUMAB WILL BE ADMINISTERED BY IV, 840 MG EVERY 2 WEEKS, FOR 10 DOSES.?ATEZOLIZUMAB MAINTENANC
     Route: 041
     Dates: start: 20200428
  2. PACLITAXEL [Suspect]
     Active Substance: PACLITAXEL
     Indication: Triple negative breast cancer
     Dosage: PACLITAXEL WILL BE ADMINISTERED BY IV, 80 MG/M^2 EVERY WEEK FOR 12 WEEKS.?MOST RECENT DOSE OF 119.2
     Route: 042
     Dates: start: 20200428
  3. EPIRUBICIN [Suspect]
     Active Substance: EPIRUBICIN
     Indication: Triple negative breast cancer
     Dosage: DOSE-DENSE EPIRUBICIN WILL BE ADMINISTERED BY IV, (90 MG/M^2) EVERY 2 WEEKS FOR A TOTAL OF 4 DOSES?M
     Route: 042
     Dates: start: 20200723
  4. CYCLOPHOSPHAMIDE [Suspect]
     Active Substance: CYCLOPHOSPHAMIDE
     Indication: Triple negative breast cancer
     Dosage: CYCLOPHOSPHAMIDE WILL BE ADMINISTERED BY IV, 600 MG/M^2 EVERY 2 WEEKS FOR 4 DOSES?MOST RECENT DOSE O
     Route: 042
     Dates: start: 20200723

REACTIONS (1)
  - Pneumonia [Recovered/Resolved]

NARRATIVE: CASE EVENT DATE: 20200904
